FAERS Safety Report 17050777 (Version 1)
Quarter: 2019Q4

REPORT INFORMATION
  Report Type: Spontaneous
  Country: US (occurrence: US)
  Receive Date: 20191119
  Receipt Date: 20191119
  Transmission Date: 20200122
  Serious: Yes (Hospitalization)
  Sender: FDA-Public Use
  Company Number: US-GLAND PHARMA LIMITED-2077030

PATIENT
  Age: 61 Year
  Sex: Male

DRUGS (4)
  1. WARFARIN [Suspect]
     Active Substance: WARFARIN
  2. AMIODARONE HYDROCHLORIDE. [Suspect]
     Active Substance: AMIODARONE HYDROCHLORIDE
     Indication: ATRIAL FIBRILLATION
  3. DILTIAZEM. [Concomitant]
     Active Substance: DILTIAZEM
  4. METOPROLOL. [Concomitant]
     Active Substance: METOPROLOL

REACTIONS (4)
  - Potentiating drug interaction [Unknown]
  - Anticoagulation drug level above therapeutic [Unknown]
  - Idiosyncratic drug reaction [Unknown]
  - Drug-induced liver injury [Recovered/Resolved]
